FAERS Safety Report 4689769-9 (Version None)
Quarter: 2005Q2

REPORT INFORMATION
  Report Type: 
  Country: None (occurrence: None)
  Receive Date: 20050608
  Receipt Date: 20050406
  Transmission Date: 20051028
  Serious: No
  Sender: FDA-Public Use
  Company Number: 2005-BP-05672BP

PATIENT
  Age: 58 Year
  Sex: 0
  Weight: 58.5 kg

DRUGS (7)
  1. SPIRIVA [Suspect]
     Indication: EMPHYSEMA
     Dosage: 18 MCG (18 MCG), IH
     Route: 055
     Dates: start: 20040614
  2. SIMVASTATIN [Concomitant]
  3. FLUNISOLIDE(FLUINSOLIDE) [Concomitant]
  4. FORMOTEROL(FORMOTEROL) [Concomitant]
  5. ALBUTEROL [Concomitant]
  6. RANITIDINE [Concomitant]
  7. THEOPHYLLINE [Concomitant]

REACTIONS (1)
  - DRUG INEFFECTIVE [None]
